FAERS Safety Report 6278620-1 (Version None)
Quarter: 2009Q3

REPORT INFORMATION
  Report Type: 
  Country: None (occurrence: None)
  Receive Date: 20090722
  Receipt Date: 20090406
  Transmission Date: 20100115
  Serious: No
  Sender: FDA-Public Use
  Company Number: US-BAUSCH-2009BL001551

PATIENT
  Age: 60 Year
  Sex: Female

DRUGS (2)
  1. OPCON-A [Suspect]
     Indication: DRY EYE
     Route: 047
     Dates: start: 20090404, end: 20090404
  2. OPCON-A [Suspect]
     Indication: SEASONAL ALLERGY
     Route: 047
     Dates: start: 20090404, end: 20090404

REACTIONS (5)
  - APPLICATION SITE ANAESTHESIA [None]
  - CONDITION AGGRAVATED [None]
  - INSTILLATION SITE IRRITATION [None]
  - MYDRIASIS [None]
  - OCULAR HYPERAEMIA [None]
